FAERS Safety Report 9015580 (Version 1)
Quarter: 2013Q1

REPORT INFORMATION
  Report Type: Spontaneous
  Country: FR (occurrence: FR)
  Receive Date: 20130116
  Receipt Date: 20130116
  Transmission Date: 20140127
  Serious: Yes (Death, Hospitalization)
  Sender: FDA-Public Use
  Company Number: FR-ELI_LILLY_AND_COMPANY-FR201301003234

PATIENT
  Age: 70 Year
  Sex: Male

DRUGS (2)
  1. ALIMTA [Suspect]
     Indication: LUNG ADENOCARCINOMA
     Dosage: UNK
     Route: 042
     Dates: start: 20120806, end: 20120806
  2. CISPLATIN [Concomitant]
     Indication: LUNG ADENOCARCINOMA
     Dosage: UNK
     Route: 042
     Dates: start: 20120806, end: 20120808

REACTIONS (6)
  - Respiratory distress [Fatal]
  - Paraneoplastic neurological syndrome [Fatal]
  - Pseudomembranous colitis [Recovered/Resolved]
  - Renal failure [Unknown]
  - Bone marrow failure [Unknown]
  - General physical health deterioration [Not Recovered/Not Resolved]
